FAERS Safety Report 5008976-9 (Version None)
Quarter: 2006Q2

REPORT INFORMATION
  Report Type: 
  Country: None (occurrence: None)
  Receive Date: 20060523
  Receipt Date: 20060509
  Transmission Date: 20061013
  Serious: Yes (Other)
  Sender: FDA-Public Use
  Company Number: PHEH2006US06199

PATIENT
  Age: 64 Year
  Sex: Female

DRUGS (1)
  1. ZELNORM [Suspect]
     Indication: IRRITABLE BOWEL SYNDROME
     Dates: start: 20031201, end: 20040101

REACTIONS (5)
  - ABDOMINAL DISTENSION [None]
  - CHEMOTHERAPY [None]
  - DRUG INEFFECTIVE [None]
  - HYSTERECTOMY [None]
  - OVARIAN CANCER [None]
